FAERS Safety Report 8010641-0 (Version None)
Quarter: 2011Q4

REPORT INFORMATION
  Report Type: 
  Country: None (occurrence: None)
  Receive Date: 20111228
  Receipt Date: 20111223
  Transmission Date: 20120403
  Serious: Yes (Other)
  Sender: FDA-Public Use
  Company Number: PHHY2011DE52850

PATIENT
  Sex: Female
  Weight: 76 kg

DRUGS (9)
  1. FORADIL [Suspect]
     Indication: CHRONIC OBSTRUCTIVE PULMONARY DISEASE
     Dosage: 12 UG, QD
     Dates: start: 20110611, end: 20110616
  2. MARCUMAR [Concomitant]
     Indication: ATRIAL FIBRILLATION
     Dosage: UNK
     Route: 048
  3. SIMVASTATIN [Concomitant]
     Dosage: 10 MG/DAY
     Route: 048
  4. LISINOPRIL [Concomitant]
     Indication: HYPERTENSION
     Dosage: 10 MG/DAY
     Route: 048
  5. TORSEMIDE [Concomitant]
     Dosage: 15 MG/DAY
     Route: 048
  6. SPIRONOLACTONE [Concomitant]
     Dosage: 25 MG/DAY
     Route: 048
  7. CITALOPRAM HYDROBROMIDE [Concomitant]
     Indication: DEPRESSION
     Dosage: 10 MG/DAY
     Route: 048
  8. LEVOTHYROXINE SODIUM [Concomitant]
     Indication: HYPOTHYROIDISM
     Dosage: 12.5 MG/DAY
  9. NEBIVOLOL HCL [Concomitant]
     Indication: CORONARY ARTERY DISEASE
     Dosage: 5 MG/DAY
     Route: 048

REACTIONS (4)
  - THROAT IRRITATION [None]
  - COUGH [None]
  - CONFUSIONAL STATE [None]
  - HALLUCINATION [None]
